FAERS Safety Report 18249299 (Version 1)
Quarter: 2020Q3

REPORT INFORMATION
  Report Type: Spontaneous
  Country: IL (occurrence: IL)
  Receive Date: 20200909
  Receipt Date: 20200909
  Transmission Date: 20201103
  Serious: Yes (Other)
  Sender: FDA-Public Use
  Company Number: IL-JNJFOC-20200843721

PATIENT
  Age: 73 Year
  Sex: Female

DRUGS (1)
  1. BALVERSA [Suspect]
     Active Substance: ERDAFITINIB
     Indication: TRANSITIONAL CELL CARCINOMA
     Route: 065

REACTIONS (1)
  - Adverse event [Unknown]
